FAERS Safety Report 15232199 (Version 2)
Quarter: 2018Q3

REPORT INFORMATION
  Report Type: Spontaneous
  Country: US (occurrence: US)
  Receive Date: 20180802
  Receipt Date: 20180918
  Transmission Date: 20181010
  Serious: No
  Sender: FDA-Public Use
  Company Number: US-PFIZER INC-2018305439

PATIENT
  Age: 76 Year
  Sex: Female
  Weight: 58.6 kg

DRUGS (1)
  1. ADVIL [Suspect]
     Active Substance: IBUPROFEN
     Indication: PAIN
     Dosage: 600 MG, 3X/DAY(TOOK 3 LIQUIGELS AT ONE TIME,TOOK AT LEAST 6 IN A DAY, IF NOT MORE)
     Route: 048
     Dates: start: 20180720

REACTIONS (2)
  - Drug ineffective [Unknown]
  - Intentional product misuse [Unknown]

NARRATIVE: CASE EVENT DATE: 20180720
